FAERS Safety Report 4375022-X (Version None)
Quarter: 2004Q2

REPORT INFORMATION
  Report Type: 
  Country: None (occurrence: None)
  Receive Date: 20040604
  Receipt Date: 20040527
  Transmission Date: 20050107
  Serious: Yes (Hospitalization)
  Sender: FDA-Public Use
  Company Number: 2004-116514-NL

PATIENT
  Age: 53 Year
  Sex: Female

DRUGS (3)
  1. MIRTAZAPINE [Suspect]
     Dosage: 2 DF ORAL
     Route: 048
     Dates: start: 20040101
  2. ALPRAZOLAM [Concomitant]
  3. ZOPICLONE [Concomitant]

REACTIONS (3)
  - ABDOMINAL PAIN [None]
  - GAMMA-GLUTAMYLTRANSFERASE INCREASED [None]
  - OESOPHAGITIS [None]
